FAERS Safety Report 9920392 (Version 1)
Quarter: 2014Q1

REPORT INFORMATION
  Report Type: Spontaneous
  Country: US (occurrence: US)
  Receive Date: 20140224
  Receipt Date: 20140224
  Transmission Date: 20141002
  Serious: Yes (Disabling, Other)
  Sender: FDA-Public Use
  Company Number: US-PFIZER INC-2014050356

PATIENT
  Age: 56 Year
  Sex: Male
  Weight: 111.11 kg

DRUGS (1)
  1. CELEBREX [Suspect]
     Indication: MUSCULOSKELETAL PAIN
     Dosage: 300 MG, 2X/DAY
     Route: 048
     Dates: start: 1997

REACTIONS (4)
  - Off label use [Unknown]
  - Pain [Unknown]
  - Arthropathy [Unknown]
  - Meniscus injury [Unknown]
